FAERS Safety Report 7797726-9 (Version None)
Quarter: 2011Q4

REPORT INFORMATION
  Report Type: 
  Country: None (occurrence: None)
  Receive Date: 20111005
  Receipt Date: 20110929
  Transmission Date: 20120403
  Serious: Yes (Death)
  Sender: FDA-Public Use
  Company Number: PHHY2011DE86571

PATIENT
  Sex: Male
  Weight: 72 kg

DRUGS (1)
  1. ZOMETA [Suspect]
     Indication: BONE DISORDER
     Dosage: 4 MG, EVERY FOUR WEEKS
     Route: 042
     Dates: start: 20110315

REACTIONS (1)
  - DEATH [None]
